FAERS Safety Report 20381179 (Version 1)
Quarter: 2022Q1

REPORT INFORMATION
  Report Type: Report from Study
  Country: CA (occurrence: CA)
  Receive Date: 20220127
  Receipt Date: 20220127
  Transmission Date: 20220423
  Serious: Yes (Other)
  Sender: FDA-Public Use
  Company Number: None

PATIENT
  Age: 67 Year
  Sex: Male

DRUGS (16)
  1. GLYCOPYRROLATE [Suspect]
     Active Substance: GLYCOPYRROLATE
     Indication: Product used for unknown indication
     Dosage: 1 EVERY 1 DAYS
  2. FLUTICASONE FUROATE\VILANTEROL TRIFENATATE [Suspect]
     Active Substance: FLUTICASONE FUROATE\VILANTEROL TRIFENATATE
     Indication: Product used for unknown indication
     Dosage: INHALATION, 1 EVERY 1 DAYS
  3. BUDESONIDE [Suspect]
     Active Substance: BUDESONIDE
     Indication: Product used for unknown indication
     Dosage: INHALATION
  4. FLUTICASONE PROPIONATE\SALMETEROL XINAFOATE [Suspect]
     Active Substance: FLUTICASONE PROPIONATE\SALMETEROL XINAFOATE
     Indication: Product used for unknown indication
  5. LEVOFLOXACIN [Suspect]
     Active Substance: LEVOFLOXACIN
     Indication: Product used for unknown indication
     Dosage: 1 EVERY 1 DAYS
  6. MEPOLIZUMAB [Suspect]
     Active Substance: MEPOLIZUMAB
     Indication: Product used for unknown indication
  7. PREDNISONE [Suspect]
     Active Substance: PREDNISONE
     Indication: Product used for unknown indication
     Route: 048
  8. PULMICORT TURBUHALER [Suspect]
     Active Substance: BUDESONIDE
     Indication: Product used for unknown indication
     Dosage: INHALATION
  9. SINGULAIR [Suspect]
     Active Substance: MONTELUKAST SODIUM
     Indication: Product used for unknown indication
  10. SPIRIVA [Suspect]
     Active Substance: TIOTROPIUM BROMIDE MONOHYDRATE
     Indication: Product used for unknown indication
  11. ULTRAM [Suspect]
     Active Substance: TRAMADOL HYDROCHLORIDE
     Indication: Product used for unknown indication
  12. PREDNISONE [Suspect]
     Active Substance: PREDNISONE
     Indication: Product used for unknown indication
     Dosage: 4 EVERY 1 DAYS
  13. ZAFIRLUKAST [Suspect]
     Active Substance: ZAFIRLUKAST
     Indication: Product used for unknown indication
     Dosage: 2 EVERY 1 DAYS
     Route: 048
  14. AMOXICILLIN TRIHYDRATE/CLAVULANATE [Concomitant]
     Indication: Product used for unknown indication
     Dosage: 2 EVERY 1 DAYS
  15. DYMISTA [Concomitant]
     Active Substance: AZELASTINE HYDROCHLORIDE\FLUTICASONE PROPIONATE
     Indication: Product used for unknown indication
     Dosage: SPRAY, METERED DOSE, 2 EVERY 1 DAYS, SUSPENSION
  16. ALBUTEROL\IPRATROPIUM BROMIDE [Concomitant]
     Active Substance: ALBUTEROL\IPRATROPIUM BROMIDE
     Indication: Product used for unknown indication
     Dosage: 4 EVERY 1 DAYS

REACTIONS (30)
  - Aphonia [Unknown]
  - Asthenia [Unknown]
  - Asthma [Unknown]
  - Chest discomfort [Unknown]
  - Chills [Unknown]
  - Chronic sinusitis [Unknown]
  - Condition aggravated [Unknown]
  - Cough [Unknown]
  - Dry skin [Unknown]
  - Dyspnoea [Unknown]
  - Dyspnoea exertional [Unknown]
  - Emphysema [Unknown]
  - Fatigue [Unknown]
  - Fungal test [Unknown]
  - Hiatus hernia [Unknown]
  - Infection [Unknown]
  - Loss of personal independence in daily activities [Unknown]
  - Pneumonia [Unknown]
  - Precancerous condition [Unknown]
  - Productive cough [Unknown]
  - Prolonged expiration [Unknown]
  - Pulmonary mass [Unknown]
  - Pyrexia [Unknown]
  - Respiratory disorder [Unknown]
  - Sinus operation [Unknown]
  - Sputum discoloured [Unknown]
  - Sputum purulent [Unknown]
  - Tachycardia [Unknown]
  - Upper respiratory tract infection [Unknown]
  - Wheezing [Unknown]
